FAERS Safety Report 10234944 (Version 1)
Quarter: 2014Q1

REPORT INFORMATION
  Report Type: Spontaneous
  Country: US (occurrence: None)
  Receive Date: 20140306
  Receipt Date: 20140306
  Transmission Date: 20141002
  Serious: Yes (Hospitalization, Other)
  Sender: FDA-Public Use
  Company Number: 163-21880-13044294

PATIENT
  Age: 66 Year
  Sex: Female
  Weight: 54.43 kg

DRUGS (15)
  1. REVLIMID (LENALIDOMIDE) (25 MILLIGRAM, CAPSULES) [Suspect]
     Indication: PLASMA CELL MYELOMA
     Route: 048
     Dates: start: 20101115
  2. ASPIRIN (ACETYLSALICYLIC ACID) [Concomitant]
  3. MODIUM (LOPERAMIDE HYDROCHLORIDE) [Concomitant]
  4. FOLIVANE-F (INTEFRA F) [Concomitant]
  5. CLARITIN (LORATADINE) [Concomitant]
  6. LEVAQUIN (LEVOFLOXACIN) [Concomitant]
  7. PEPCID (FAMOTIDINE) [Concomitant]
  8. FLONASE (FLUTICASONE PROPIONATE) [Concomitant]
  9. LEVOTHYROXINE (LEVOTHYROXINE) [Concomitant]
  10. LEXAPRO (ESCITALOPRAM OXALATE) [Concomitant]
  11. CALCIUM (CALCIUM) [Concomitant]
  12. LACTAID (TILACTASE) [Concomitant]
  13. INTEGRA (INTEGRA) [Concomitant]
  14. MULTIVITAMINS (MULTIVATAMINS) [Concomitant]
  15. REGLAN (METOCLOPRAMIDE) [Concomitant]

REACTIONS (3)
  - Pyrexia [None]
  - Pneumonia [None]
  - Full blood count decreased [None]
